FAERS Safety Report 7344263-1 (Version None)
Quarter: 2011Q1

REPORT INFORMATION
  Report Type: 
  Country: None (occurrence: None)
  Receive Date: 20110310
  Receipt Date: 20100927
  Transmission Date: 20110831
  Serious: No
  Sender: FDA-Public Use
  Company Number: A0883447A

PATIENT
  Age: 41 Year
  Sex: Female

DRUGS (1)
  1. NICORETTE (MINT) [Suspect]

REACTIONS (4)
  - THROAT IRRITATION [None]
  - SALIVARY HYPERSECRETION [None]
  - DYSPHAGIA [None]
  - PARAESTHESIA ORAL [None]
